FAERS Safety Report 18268393 (Version 1)
Quarter: 2020Q3

REPORT INFORMATION
  Report Type: Report from Study
  Country: CA (occurrence: CA)
  Receive Date: 20200915
  Receipt Date: 20200915
  Transmission Date: 20201103
  Serious: Yes (Hospitalization)
  Sender: FDA-Public Use
  Company Number: CA-PFIZER INC-2020353198

PATIENT
  Age: 60 Year
  Sex: Female

DRUGS (10)
  1. TRASTUZUMAB. [Suspect]
     Active Substance: TRASTUZUMAB
     Indication: HER2 POSITIVE BREAST CANCER
     Dosage: UNK
     Route: 041
  2. TRASTUZUMAB. [Suspect]
     Active Substance: TRASTUZUMAB
     Dosage: 360 MG, CYCLIC (1 EVERY 6 WEEKS)
     Route: 042
  3. TRASTUZUMAB. [Suspect]
     Active Substance: TRASTUZUMAB
     Dosage: 342 MG, CYCLIC (1 EVERY 3 WEEKS)
     Route: 042
  4. TRASTUZUMAB. [Suspect]
     Active Substance: TRASTUZUMAB
     Dosage: 342 MG, CYCLIC (1 EVERY 3 WEEKS)
     Route: 042
  5. TRASTUZUMAB. [Suspect]
     Active Substance: TRASTUZUMAB
     Indication: HER2 POSITIVE BREAST CANCER
     Dosage: 342 MG, MONTHLY (1 EVERY 4 WEEKS)
     Route: 042
  6. XGEVA [Concomitant]
     Active Substance: DENOSUMAB
     Route: 058
  7. IBRANCE [Concomitant]
     Active Substance: PALBOCICLIB
     Route: 065
  8. TRASTUZUMAB. [Suspect]
     Active Substance: TRASTUZUMAB
     Dosage: 396 MG, CYCLIC (1 EVERY 3 WEEKS)
     Route: 042
  9. TRASTUZUMAB. [Suspect]
     Active Substance: TRASTUZUMAB
     Dosage: 456 MG, CYCLIC (1 EVERY 3 WEEKS)
     Route: 042
  10. AMLODIPINE [Concomitant]
     Active Substance: AMLODIPINE BESYLATE

REACTIONS (2)
  - Gastroenteritis [Unknown]
  - Blood pressure systolic increased [Unknown]
